FAERS Safety Report 8845483 (Version 4)
Quarter: 2013Q2

REPORT INFORMATION
  Report Type: Report from Study
  Country: US (occurrence: US)
  Receive Date: 20121017
  Receipt Date: 20130613
  Transmission Date: 20140414
  Serious: Yes (Hospitalization)
  Sender: FDA-Public Use
  Company Number: US-VERTEX PHARMACEUTICAL INC.-2012-022748

PATIENT
  Age: 55 Year
  Sex: Female
  Weight: 47 kg

DRUGS (3)
  1. VX-950 (TELAPREVIR) [Suspect]
     Indication: HEPATITIS C
     Dosage: 375 MG TAB
     Route: 048
     Dates: start: 20120713, end: 20120925
  2. Z-PEGYLATED INTERFERON-2A [Suspect]
     Indication: HEPATITIS C
     Dosage: 180 ?G, QW
     Route: 058
     Dates: start: 20120713
  3. Z-RIBAVIRIN [Suspect]
     Indication: HEPATITIS C
     Dosage: 200 MG, UNK
     Route: 048
     Dates: start: 20120713, end: 20120909

REACTIONS (1)
  - Bacteraemia [Recovered/Resolved]
